FAERS Safety Report 9916882 (Version 2)
Quarter: 2014Q1

REPORT INFORMATION
  Report Type: Spontaneous
  Country: US (occurrence: US)
  Receive Date: 20140221
  Receipt Date: 20140221
  Transmission Date: 20141002
  Serious: Yes (Other)
  Sender: FDA-Public Use
  Company Number: US-ELI_LILLY_AND_COMPANY-US201311003221

PATIENT
  Age: 79 Year
  Sex: Male

DRUGS (2)
  1. CYMBALTA [Suspect]
     Indication: ARTHRITIS
     Dosage: 60 MG, QD
     Route: 048
  2. CYMBALTA [Suspect]
     Dosage: 30 MG, UNKNOWN
     Route: 048

REACTIONS (1)
  - Transient ischaemic attack [Recovering/Resolving]
